FAERS Safety Report 5206676-3 (Version None)
Quarter: 2006Q4

REPORT INFORMATION
  Report Type: 
  Country: None (occurrence: None)
  Receive Date: 20061026
  Receipt Date: 20060920
  Transmission Date: 20070319
  Serious: Yes (Other)
  Sender: FDA-Public Use
  Company Number: 2006114163

PATIENT

DRUGS (2)
  1. LYRICA [Suspect]
  2. PLAVIX [Suspect]

REACTIONS (1)
  - THROMBOCYTOPENIA [None]
